FAERS Safety Report 23431609 (Version 2)
Quarter: 2024Q1

REPORT INFORMATION
  Report Type: Spontaneous
  Country: US (occurrence: US)
  Receive Date: 20240123
  Receipt Date: 20240214
  Transmission Date: 20240409
  Serious: No
  Sender: FDA-Public Use
  Company Number: US-SA-SAC20240119001068

PATIENT
  Sex: Female

DRUGS (3)
  1. DUPIXENT [Suspect]
     Active Substance: DUPILUMAB
     Indication: Dermatitis atopic
     Dosage: 300 MG, QOW
     Route: 058
     Dates: start: 202312
  2. DUPIXENT [Suspect]
     Active Substance: DUPILUMAB
     Indication: Eczema
  3. PRAVASTATIN [Concomitant]
     Active Substance: PRAVASTATIN

REACTIONS (7)
  - Weight increased [Unknown]
  - Dry mouth [Unknown]
  - Stress [Unknown]
  - Increased appetite [Unknown]
  - Myalgia [Unknown]
  - Injection site pain [Unknown]
  - Injection site bruising [Unknown]
